FAERS Safety Report 5253567-8 (Version None)
Quarter: 2007Q1

REPORT INFORMATION
  Report Type: 
  Country: None (occurrence: None)
  Receive Date: 20070301
  Receipt Date: 20070219
  Transmission Date: 20070707
  Serious: Yes (Other)
  Sender: FDA-Public Use
  Company Number: JP-PFIZER INC-2006148183

PATIENT

DRUGS (3)
  1. DIFLUCAN [Suspect]
     Indication: ANTIFUNGAL PROPHYLAXIS
     Dosage: DAILY DOSE:100MG
     Route: 048
  2. ZANTAC [Concomitant]
     Route: 048
  3. ALLOPURINOL SODIUM [Concomitant]
     Route: 048

REACTIONS (1)
  - PANCYTOPENIA [None]
